FAERS Safety Report 4667570-X (Version None)
Quarter: 2005Q2

REPORT INFORMATION
  Report Type: 
  Country: None (occurrence: None)
  Receive Date: 20050520
  Receipt Date: 20050510
  Transmission Date: 20051028
  Serious: Yes (Other)
  Sender: FDA-Public Use
  Company Number: US-BRISTOL-MYERS SQUIBB COMPANY-12962502

PATIENT
  Age: 7 Year
  Sex: Male

DRUGS (3)
  1. VIDEX [Suspect]
     Indication: HIV INFECTION
     Dosage: DOSE REDUCED FROM 200 MG DAILY TO 125 MG DAILY ON AN UNSPECIFIED DATE
     Route: 048
     Dates: start: 20030124
  2. VIREAD [Suspect]
     Indication: HIV INFECTION
     Route: 048
     Dates: start: 20030124
  3. ZIAGEN [Suspect]
     Indication: HIV INFECTION
     Route: 048
     Dates: start: 20030124

REACTIONS (1)
  - BONE MARROW NECROSIS [None]
